FAERS Safety Report 10574789 (Version 4)
Quarter: 2015Q1

REPORT INFORMATION
  Report Type: Spontaneous
  Country: FR (occurrence: FR)
  Receive Date: 20141110
  Receipt Date: 20150220
  Transmission Date: 20150720
  Serious: Yes (Hospitalization)
  Sender: FDA-Public Use
  Company Number: FR-PFIZER INC-2014305212

PATIENT
  Age: 67 Year
  Sex: Female

DRUGS (1)
  1. EFFEXOR LP [Suspect]
     Active Substance: VENLAFAXINE HYDROCHLORIDE
     Indication: DEPRESSION
     Dosage: 75 MG, 2X/DAY
     Dates: start: 20141001, end: 20141102

REACTIONS (19)
  - Vertigo [Unknown]
  - Palpitations [Unknown]
  - Confusional state [Unknown]
  - Weight decreased [Unknown]
  - Drug ineffective [Unknown]
  - Diarrhoea [Unknown]
  - Chills [Unknown]
  - Cardiac disorder [Unknown]
  - Decreased appetite [Unknown]
  - Nausea [Unknown]
  - Incoherent [Unknown]
  - Blood glucose increased [Unknown]
  - Condition aggravated [Unknown]
  - Fatigue [Unknown]
  - Burning sensation [Unknown]
  - Feeling of body temperature change [Unknown]
  - Hallucination, visual [Unknown]
  - Suicidal ideation [Unknown]
  - Depression [Unknown]

NARRATIVE: CASE EVENT DATE: 201410
